FAERS Safety Report 7682043-8 (Version None)
Quarter: 2011Q3

REPORT INFORMATION
  Report Type: 
  Country: None (occurrence: None)
  Receive Date: 20110815
  Receipt Date: 20110802
  Transmission Date: 20111222
  Serious: Yes (Other)
  Sender: FDA-Public Use
  Company Number: US-ELI_LILLY_AND_COMPANY-US201103000529

PATIENT
  Sex: Female

DRUGS (4)
  1. FORTEO [Suspect]
     Dosage: 20 UG, DAILY (1/D)
  2. FORTEO [Suspect]
     Dosage: 20 UG, QD
  3. FORTEO [Suspect]
     Indication: OSTEOPOROSIS
     Dosage: 20 UG, DAILY (1/D)
     Dates: start: 20101001
  4. FORTEO [Suspect]
     Dosage: 20 UG, QD

REACTIONS (6)
  - SHOULDER ARTHROPLASTY [None]
  - ARTHRITIS [None]
  - VERTIGO [None]
  - MIGRAINE [None]
  - DIZZINESS [None]
  - INJECTION SITE HAEMATOMA [None]
